FAERS Safety Report 11939548 (Version 1)
Quarter: 2016Q1

REPORT INFORMATION
  Report Type: Spontaneous
  Country: FR (occurrence: FR)
  Receive Date: 20160122
  Receipt Date: 20160122
  Transmission Date: 20160526
  Serious: Yes (Hospitalization)
  Sender: FDA-Public Use
  Company Number: FR-BRISTOL-MYERS SQUIBB COMPANY-BMS-2015-085441

PATIENT
  Age: 31 Year
  Sex: Female

DRUGS (12)
  1. ABILIFY [Suspect]
     Active Substance: ARIPIPRAZOLE
     Indication: BIPOLAR DISORDER
     Dosage: 10 MG, QD
     Route: 048
     Dates: start: 20151119
  2. ABILIFY [Suspect]
     Active Substance: ARIPIPRAZOLE
     Dosage: 30 MG, QD
     Route: 048
     Dates: start: 20151126
  3. ABILIFY [Suspect]
     Active Substance: ARIPIPRAZOLE
     Dosage: 5 MG, QD
     Route: 048
     Dates: start: 20151202
  4. HALODOL [Concomitant]
     Active Substance: HALOPERIDOL
     Indication: MANIA
     Dosage: 1 DF, QD
     Route: 048
     Dates: start: 20151201
  5. THERALENE [Concomitant]
     Active Substance: TRIMEPRAZINE
     Indication: INSOMNIA
     Dosage: 1 DF, UNK
     Route: 065
  6. LANSOYL [Concomitant]
     Active Substance: MINERAL OIL
     Indication: CONSTIPATION
     Route: 065
  7. NOZINAN                            /00038601/ [Concomitant]
     Active Substance: LEVOMEPROMAZINE
     Indication: PRODUCT USED FOR UNKNOWN INDICATION
     Dosage: 1 DF, QD
     Route: 048
  8. VALIUM [Concomitant]
     Active Substance: DIAZEPAM
     Indication: PRODUCT USED FOR UNKNOWN INDICATION
     Dosage: UNK
     Route: 065
     Dates: start: 20151130
  9. HEPTAMINOL [Concomitant]
     Active Substance: HEPTAMINOL
     Indication: PRODUCT USED FOR UNKNOWN INDICATION
     Route: 065
  10. MOVICOL [Concomitant]
     Active Substance: POLYETHYLENE GLYCOL 3350\POTASSIUM CHLORIDE\SODIUM BICARBONATE\SODIUM CHLORIDE
     Indication: CONSTIPATION
     Route: 065
  11. ABILIFY [Suspect]
     Active Substance: ARIPIPRAZOLE
     Dosage: 10 MG, QD
     Route: 048
     Dates: start: 20151201
  12. ABILIFY [Suspect]
     Active Substance: ARIPIPRAZOLE
     Dosage: 15 MG, QD
     Route: 048
     Dates: start: 20151123

REACTIONS (2)
  - Hyperprolactinaemia [Not Recovered/Not Resolved]
  - Mania [Not Recovered/Not Resolved]

NARRATIVE: CASE EVENT DATE: 20151203
